FAERS Safety Report 4890742-6 (Version None)
Quarter: 2006Q1

REPORT INFORMATION
  Report Type: 
  Country: None (occurrence: None)
  Receive Date: 20060125
  Receipt Date: 20050309
  Transmission Date: 20060701
  Serious: Yes (Other)
  Sender: FDA-Public Use
  Company Number: US-BRISTOL-MYERS SQUIBB COMPANY-12893152

PATIENT
  Age: 49 Year
  Sex: Female

DRUGS (6)
  1. STADOL [Suspect]
     Route: 045
     Dates: start: 19970701
  2. PROMETHAZINE [Concomitant]
  3. ULTRAM [Concomitant]
  4. AMITRIPTYLINE HCL [Concomitant]
  5. LORAZEPAM [Concomitant]
  6. HYDROXYZINE [Concomitant]

REACTIONS (1)
  - DEPENDENCE [None]
